FAERS Safety Report 7328158-5 (Version None)
Quarter: 2011Q1

REPORT INFORMATION
  Report Type: 
  Country: None (occurrence: None)
  Receive Date: 20110303
  Receipt Date: 20110218
  Transmission Date: 20110831
  Serious: Yes (Hospitalization, Other)
  Sender: FDA-Public Use
  Company Number: PHHY2010AU63540

PATIENT
  Sex: Female

DRUGS (2)
  1. CLOZARIL [Suspect]
     Dosage: 12.5 MG
     Dates: start: 20030121
  2. CLOZARIL [Suspect]
     Dosage: 250 MG, UNK

REACTIONS (5)
  - TACHYCARDIA [None]
  - ACUTE PSYCHOSIS [None]
  - MALAISE [None]
  - BLOOD PRESSURE DECREASED [None]
  - DIZZINESS [None]
